FAERS Safety Report 7625177-6 (Version None)
Quarter: 2011Q3

REPORT INFORMATION
  Report Type: 
  Country: None (occurrence: None)
  Receive Date: 20110721
  Receipt Date: 20101123
  Transmission Date: 20111222
  Serious: No
  Sender: FDA-Public Use
  Company Number: US-BAYER-2011-004476

PATIENT
  Age: 24 Year

DRUGS (4)
  1. IBUPROFEN [Concomitant]
     Indication: HEADACHE
     Dosage: 6 MIU, UNK
     Route: 058
     Dates: start: 20101023
  2. BETASERON [Suspect]
  3. ACETAMINOPHEN [Concomitant]
     Indication: HEADACHE
  4. NAPROXEN (ALEVE) [Concomitant]
     Indication: HEADACHE

REACTIONS (1)
  - HEADACHE [None]
